FAERS Safety Report 4401165-8 (Version None)
Quarter: 2004Q3

REPORT INFORMATION
  Report Type: 
  Country: None (occurrence: None)
  Receive Date: 20040907
  Receipt Date: 20031202
  Transmission Date: 20050211
  Serious: No
  Sender: FDA-Public Use
  Company Number: US-BRISTOL-MYERS SQUIBB COMPANY-12446555

PATIENT
  Age: 75 Year
  Sex: Male

DRUGS (5)
  1. COUMADIN [Suspect]
     Route: 048
  2. IMODIUM [Interacting]
     Indication: DIARRHOEA
     Route: 048
     Dates: start: 20031119
  3. TENORMIN [Concomitant]
  4. PROBENECID [Concomitant]
  5. RANITIDINE [Concomitant]

REACTIONS (2)
  - DRUG INTERACTION [None]
  - INTERNATIONAL NORMALISED RATIO INCREASED [None]
